FAERS Safety Report 18672342 (Version 2)
Quarter: 2022Q4

REPORT INFORMATION
  Report Type: Other
  Country: JP (occurrence: JP)
  Receive Date: 20201228
  Receipt Date: 20221215
  Transmission Date: 20230113
  Serious: Yes (Hospitalization, Other)
  Sender: FDA-Public Use
  Company Number: JP-CHUGAI-A2020054778ROCHE

PATIENT
  Age: 64 Year

DRUGS (21)
  1. ATEZOLIZUMAB [Suspect]
     Active Substance: ATEZOLIZUMAB
     Indication: Non-small cell lung cancer
     Route: 041
     Dates: start: 20201111, end: 20201111
  2. BEVACIZUMAB [Suspect]
     Active Substance: BEVACIZUMAB
     Indication: Non-small cell lung cancer
     Route: 041
     Dates: start: 20201111
  3. OXYCODONE HYDROCHLORIDE [Suspect]
     Active Substance: OXYCODONE HYDROCHLORIDE
     Indication: Non-small cell lung cancer
     Dosage: DOSE INTERVAL UNCERTAINTY
     Route: 048
     Dates: start: 20201110
  4. OXYCODONE HYDROCHLORIDE [Suspect]
     Active Substance: OXYCODONE HYDROCHLORIDE
     Indication: Non-small cell lung cancer
     Dosage: DOSE INTERVAL UNCERTAINTY
     Route: 048
     Dates: start: 20201128, end: 202012
  5. OXYCODONE HYDROCHLORIDE [Suspect]
     Active Substance: OXYCODONE HYDROCHLORIDE
     Dosage: DOSE INTERVAL UNCERTAINTY
     Route: 048
     Dates: start: 20201203, end: 20201207
  6. CALONAL [Suspect]
     Active Substance: ACETAMINOPHEN
     Indication: Non-small cell lung cancer
     Dosage: DOSE INTERVAL UNCERTAINTY
     Route: 048
     Dates: start: 20201127
  7. ZOLPIDEM TARTRATE [Suspect]
     Active Substance: ZOLPIDEM TARTRATE
     Indication: Insomnia
     Dosage: DOSE INTERVAL UNCERTAINTY
     Route: 048
     Dates: start: 20201122, end: 20201128
  8. CARBOPLATIN [Concomitant]
     Active Substance: CARBOPLATIN
     Indication: Non-small cell lung cancer
     Dosage: DOSE INTERVAL UNCERTAINTY
     Route: 041
     Dates: start: 20201111
  9. PACLITAXEL [Concomitant]
     Active Substance: PACLITAXEL
     Indication: Non-small cell lung cancer
     Route: 041
     Dates: start: 20201111, end: 20201111
  10. MAGNESIUM OXIDE [Concomitant]
     Active Substance: MAGNESIUM OXIDE
     Indication: Prophylaxis
     Dosage: DOSE INTERVAL UNCERTAINTY
     Route: 048
     Dates: start: 20201020
  11. LOXOPROFEN SODIUM DIHYDRATE [Concomitant]
     Active Substance: LOXOPROFEN SODIUM DIHYDRATE
     Indication: Non-small cell lung cancer
     Dosage: DOSE INTERVAL UNCERTAINTY
     Route: 048
     Dates: start: 20191112
  12. REBAMIPIDE [Concomitant]
     Active Substance: REBAMIPIDE
     Indication: Prophylaxis
     Dosage: DOSE INTERVAL UNCERTAINTY
     Route: 048
     Dates: start: 20191112
  13. PREDONINE [Concomitant]
     Active Substance: PREDNISOLONE
     Indication: Prophylaxis
     Dosage: DOSE INTERVAL UNCERTAINTY
     Route: 048
     Dates: start: 20200714
  14. NEXIUM [Concomitant]
     Active Substance: ESOMEPRAZOLE MAGNESIUM
     Indication: Prophylaxis
     Dosage: DOSE INTERVAL UNCERTAINTY
     Route: 048
     Dates: start: 20191217
  15. ALLOID G [Concomitant]
     Active Substance: SODIUM ALGINATE
     Indication: Prophylaxis
     Dosage: DOSE INTERVAL UNCERTAINTY
     Route: 048
     Dates: start: 20201119, end: 20201207
  16. ORADOL (JAPAN) [Concomitant]
     Indication: Prophylaxis
     Dosage: DOSE INTERVAL UNCERTAINTY
     Route: 048
     Dates: start: 20201118, end: 20201207
  17. RIKKUNSHITO TSUMURA [Concomitant]
     Indication: Prophylaxis
     Dosage: DOSE INTERVAL UNCERTAINTY
     Route: 048
     Dates: start: 20201124, end: 20201207
  18. AZUNOL [Concomitant]
     Indication: Prophylaxis
     Dosage: DOSE INTERVAL UNCERTAINTY
     Route: 048
     Dates: start: 20201118, end: 20201203
  19. SENNOSIDES [Concomitant]
     Active Substance: SENNOSIDES
     Indication: Prophylaxis
     Dosage: DOSE INTERVAL UNCERTAINTY
     Route: 048
     Dates: end: 20201207
  20. XYLOCAINE [Concomitant]
     Active Substance: LIDOCAINE HYDROCHLORIDE
     Indication: Prophylaxis
     Dosage: DOSE INTERVAL UNCERTAINTY
     Route: 065
     Dates: start: 20201118, end: 20201203
  21. SEROQUEL [Concomitant]
     Active Substance: QUETIAPINE FUMARATE
     Indication: Prophylaxis
     Dosage: DOSE INTERVAL UNCERTAINTY
     Route: 048

REACTIONS (10)
  - Delirium [Recovered/Resolved]
  - Neutrophil count decreased [Unknown]
  - Febrile neutropenia [Unknown]
  - White blood cell count decreased [Unknown]
  - Decreased appetite [Unknown]
  - Hypertension [Unknown]
  - Thyroid disorder [Unknown]
  - Pruritus [Unknown]
  - Anaemia [Unknown]
  - Oropharyngeal pain [Unknown]

NARRATIVE: CASE EVENT DATE: 20201112
